FAERS Safety Report 25372838 (Version 1)
Quarter: 2025Q2

REPORT INFORMATION
  Report Type: Spontaneous
  Country: CA (occurrence: CA)
  Receive Date: 20250529
  Receipt Date: 20250529
  Transmission Date: 20250717
  Serious: Yes (Hospitalization, Other)
  Sender: MYLAN
  Company Number: CA-MYLANLABS-2025M1041296

PATIENT
  Age: 48 Year
  Sex: Female

DRUGS (84)
  1. VALPROIC ACID [Suspect]
     Active Substance: VALPROIC ACID
     Indication: Product used for unknown indication
  2. VALPROIC ACID [Suspect]
     Active Substance: VALPROIC ACID
     Route: 065
  3. VALPROIC ACID [Suspect]
     Active Substance: VALPROIC ACID
     Route: 065
  4. VALPROIC ACID [Suspect]
     Active Substance: VALPROIC ACID
  5. FENTANYL [Suspect]
     Active Substance: FENTANYL
     Indication: Product used for unknown indication
  6. FENTANYL [Suspect]
     Active Substance: FENTANYL
     Route: 065
  7. FENTANYL [Suspect]
     Active Substance: FENTANYL
     Route: 065
  8. FENTANYL [Suspect]
     Active Substance: FENTANYL
  9. OMALIZUMAB [Suspect]
     Active Substance: OMALIZUMAB
     Indication: Chronic spontaneous urticaria
     Route: 058
  10. OMALIZUMAB [Suspect]
     Active Substance: OMALIZUMAB
     Route: 058
  11. OMALIZUMAB [Suspect]
     Active Substance: OMALIZUMAB
  12. OMALIZUMAB [Suspect]
     Active Substance: OMALIZUMAB
  13. OMALIZUMAB [Suspect]
     Active Substance: OMALIZUMAB
     Route: 058
  14. OMALIZUMAB [Suspect]
     Active Substance: OMALIZUMAB
     Route: 058
  15. OMALIZUMAB [Suspect]
     Active Substance: OMALIZUMAB
  16. OMALIZUMAB [Suspect]
     Active Substance: OMALIZUMAB
  17. OMALIZUMAB [Suspect]
     Active Substance: OMALIZUMAB
     Route: 058
  18. OMALIZUMAB [Suspect]
     Active Substance: OMALIZUMAB
     Route: 058
  19. OMALIZUMAB [Suspect]
     Active Substance: OMALIZUMAB
  20. OMALIZUMAB [Suspect]
     Active Substance: OMALIZUMAB
  21. OMALIZUMAB [Suspect]
     Active Substance: OMALIZUMAB
     Route: 065
  22. OMALIZUMAB [Suspect]
     Active Substance: OMALIZUMAB
     Route: 065
  23. OMALIZUMAB [Suspect]
     Active Substance: OMALIZUMAB
  24. OMALIZUMAB [Suspect]
     Active Substance: OMALIZUMAB
  25. OMALIZUMAB [Suspect]
     Active Substance: OMALIZUMAB
  26. OMALIZUMAB [Suspect]
     Active Substance: OMALIZUMAB
  27. OMALIZUMAB [Suspect]
     Active Substance: OMALIZUMAB
     Route: 065
  28. OMALIZUMAB [Suspect]
     Active Substance: OMALIZUMAB
     Route: 065
  29. OMALIZUMAB [Suspect]
     Active Substance: OMALIZUMAB
     Indication: Chronic spontaneous urticaria
  30. OMALIZUMAB [Suspect]
     Active Substance: OMALIZUMAB
     Route: 058
  31. OMALIZUMAB [Suspect]
     Active Substance: OMALIZUMAB
     Route: 058
  32. OMALIZUMAB [Suspect]
     Active Substance: OMALIZUMAB
  33. OMALIZUMAB [Suspect]
     Active Substance: OMALIZUMAB
     Indication: Chronic spontaneous urticaria
     Route: 058
  34. OMALIZUMAB [Suspect]
     Active Substance: OMALIZUMAB
  35. OMALIZUMAB [Suspect]
     Active Substance: OMALIZUMAB
  36. OMALIZUMAB [Suspect]
     Active Substance: OMALIZUMAB
     Route: 058
  37. OMALIZUMAB [Suspect]
     Active Substance: OMALIZUMAB
  38. OMALIZUMAB [Suspect]
     Active Substance: OMALIZUMAB
  39. OMALIZUMAB [Suspect]
     Active Substance: OMALIZUMAB
     Route: 058
  40. OMALIZUMAB [Suspect]
     Active Substance: OMALIZUMAB
     Route: 058
  41. OMALIZUMAB [Suspect]
     Active Substance: OMALIZUMAB
     Route: 065
  42. OMALIZUMAB [Suspect]
     Active Substance: OMALIZUMAB
  43. OMALIZUMAB [Suspect]
     Active Substance: OMALIZUMAB
  44. OMALIZUMAB [Suspect]
     Active Substance: OMALIZUMAB
     Route: 065
  45. OMALIZUMAB [Suspect]
     Active Substance: OMALIZUMAB
  46. OMALIZUMAB [Suspect]
     Active Substance: OMALIZUMAB
  47. OMALIZUMAB [Suspect]
     Active Substance: OMALIZUMAB
     Route: 065
  48. OMALIZUMAB [Suspect]
     Active Substance: OMALIZUMAB
     Route: 065
  49. OMALIZUMAB [Suspect]
     Active Substance: OMALIZUMAB
  50. OMALIZUMAB [Suspect]
     Active Substance: OMALIZUMAB
  51. OMALIZUMAB [Suspect]
     Active Substance: OMALIZUMAB
     Route: 065
  52. OMALIZUMAB [Suspect]
     Active Substance: OMALIZUMAB
     Route: 065
  53. OMALIZUMAB [Suspect]
     Active Substance: OMALIZUMAB
  54. OMALIZUMAB [Suspect]
     Active Substance: OMALIZUMAB
     Route: 058
  55. OMALIZUMAB [Suspect]
     Active Substance: OMALIZUMAB
  56. OMALIZUMAB [Suspect]
     Active Substance: OMALIZUMAB
     Route: 058
  57. ATROVENT [Concomitant]
     Active Substance: IPRATROPIUM BROMIDE
     Indication: Asthma
     Dosage: 2 DOSAGE FORM, TID (3 EVERY 1 DAYS)
  58. ATROVENT [Concomitant]
     Active Substance: IPRATROPIUM BROMIDE
     Dosage: 2 DOSAGE FORM, TID (3 EVERY 1 DAYS)
     Route: 055
  59. ATROVENT [Concomitant]
     Active Substance: IPRATROPIUM BROMIDE
     Dosage: 2 DOSAGE FORM, TID (3 EVERY 1 DAYS)
     Route: 055
  60. ATROVENT [Concomitant]
     Active Substance: IPRATROPIUM BROMIDE
     Dosage: 2 DOSAGE FORM, TID (3 EVERY 1 DAYS)
  61. B+o [Concomitant]
     Indication: Product used for unknown indication
  62. B+o [Concomitant]
     Route: 065
  63. B+o [Concomitant]
     Route: 065
  64. B+o [Concomitant]
  65. BUTRANS [Concomitant]
     Active Substance: BUPRENORPHINE
     Indication: Product used for unknown indication
  66. BUTRANS [Concomitant]
     Active Substance: BUPRENORPHINE
     Route: 065
  67. BUTRANS [Concomitant]
     Active Substance: BUPRENORPHINE
     Route: 065
  68. BUTRANS [Concomitant]
     Active Substance: BUPRENORPHINE
  69. CLARITIN [Concomitant]
     Active Substance: LORATADINE
     Indication: Asthma
  70. CLARITIN [Concomitant]
     Active Substance: LORATADINE
     Route: 048
  71. CLARITIN [Concomitant]
     Active Substance: LORATADINE
     Route: 048
  72. CLARITIN [Concomitant]
     Active Substance: LORATADINE
  73. MAXALT [Concomitant]
     Active Substance: RIZATRIPTAN BENZOATE
     Indication: Product used for unknown indication
  74. MAXALT [Concomitant]
     Active Substance: RIZATRIPTAN BENZOATE
     Route: 065
  75. MAXALT [Concomitant]
     Active Substance: RIZATRIPTAN BENZOATE
     Route: 065
  76. MAXALT [Concomitant]
     Active Substance: RIZATRIPTAN BENZOATE
  77. VENTOLIN [Concomitant]
     Active Substance: ALBUTEROL SULFATE
     Indication: Asthma
  78. VENTOLIN [Concomitant]
     Active Substance: ALBUTEROL SULFATE
     Route: 055
  79. VENTOLIN [Concomitant]
     Active Substance: ALBUTEROL SULFATE
     Route: 055
  80. VENTOLIN [Concomitant]
     Active Substance: ALBUTEROL SULFATE
  81. RUPATADINE FUMARATE [Concomitant]
     Active Substance: RUPATADINE FUMARATE
     Indication: Chronic spontaneous urticaria
     Dosage: 1 DOSAGE FORM, QD (1 EVERY 1 DAYS)
  82. RUPATADINE FUMARATE [Concomitant]
     Active Substance: RUPATADINE FUMARATE
     Dosage: 1 DOSAGE FORM, QD (1 EVERY 1 DAYS)
     Route: 048
  83. RUPATADINE FUMARATE [Concomitant]
     Active Substance: RUPATADINE FUMARATE
     Dosage: 1 DOSAGE FORM, QD (1 EVERY 1 DAYS)
     Route: 048
  84. RUPATADINE FUMARATE [Concomitant]
     Active Substance: RUPATADINE FUMARATE
     Dosage: 1 DOSAGE FORM, QD (1 EVERY 1 DAYS)

REACTIONS (36)
  - Anosmia [Not Recovered/Not Resolved]
  - Blood pressure decreased [Not Recovered/Not Resolved]
  - COVID-19 [Not Recovered/Not Resolved]
  - Chest pain [Not Recovered/Not Resolved]
  - Chronic spontaneous urticaria [Not Recovered/Not Resolved]
  - Condition aggravated [Not Recovered/Not Resolved]
  - Decreased appetite [Not Recovered/Not Resolved]
  - Environmental exposure [Not Recovered/Not Resolved]
  - Exposure to SARS-CoV-2 [Not Recovered/Not Resolved]
  - Exposure to fungus [Not Recovered/Not Resolved]
  - Hepatic enzyme increased [Not Recovered/Not Resolved]
  - Hypertension [Not Recovered/Not Resolved]
  - Illness [Not Recovered/Not Resolved]
  - Immune system disorder [Not Recovered/Not Resolved]
  - Influenza [Not Recovered/Not Resolved]
  - Malaise [Not Recovered/Not Resolved]
  - Movement disorder [Not Recovered/Not Resolved]
  - Myalgia [Not Recovered/Not Resolved]
  - Oropharyngeal pain [Not Recovered/Not Resolved]
  - Pain [Not Recovered/Not Resolved]
  - Pain in extremity [Not Recovered/Not Resolved]
  - Skin disorder [Not Recovered/Not Resolved]
  - Urticaria [Not Recovered/Not Resolved]
  - Weight decreased [Not Recovered/Not Resolved]
  - Asthenia [Not Recovered/Not Resolved]
  - Cough [Not Recovered/Not Resolved]
  - Diarrhoea [Not Recovered/Not Resolved]
  - Drug hypersensitivity [Not Recovered/Not Resolved]
  - Memory impairment [Not Recovered/Not Resolved]
  - Pruritus [Not Recovered/Not Resolved]
  - Abdominal pain lower [Not Recovered/Not Resolved]
  - Pyrexia [Not Recovered/Not Resolved]
  - Inappropriate schedule of product administration [Not Recovered/Not Resolved]
  - Incorrect dose administered [Not Recovered/Not Resolved]
  - Product dose omission issue [Not Recovered/Not Resolved]
  - Therapeutic response shortened [Not Recovered/Not Resolved]
